FAERS Safety Report 6574413-6 (Version None)
Quarter: 2010Q2

REPORT INFORMATION
  Report Type: 
  Country: None (occurrence: None)
  Receive Date: 20100209
  Receipt Date: 20100201
  Transmission Date: 20101027
  Serious: Yes (Other)
  Sender: FDA-Public Use
  Company Number: US-RB-002202-10

PATIENT
  Sex: Female

DRUGS (1)
  1. MUCINEX [Suspect]
     Route: 048

REACTIONS (1)
  - EPISTAXIS [None]
